FAERS Safety Report 16208117 (Version 1)
Quarter: 2019Q2

REPORT INFORMATION
  Report Type: Spontaneous
  Country: US (occurrence: US)
  Receive Date: 20190417
  Receipt Date: 20190417
  Transmission Date: 20190711
  Serious: Yes (Other)
  Sender: FDA-Public Use
  Company Number: US-BAYER-2019-073845

PATIENT
  Sex: Female

DRUGS (1)
  1. GADOLINIUM IN UNSPECIFIED DRUG [Suspect]
     Active Substance: GADOLINIUM
     Dosage: UNK UNK, ONCE

REACTIONS (5)
  - Myalgia [None]
  - Skin lesion [Not Recovered/Not Resolved]
  - Gadolinium deposition disease [None]
  - Malaise [Not Recovered/Not Resolved]
  - Arthralgia [None]
